FAERS Safety Report 5604491-X (Version None)
Quarter: 2008Q1

REPORT INFORMATION
  Report Type: 
  Country: None (occurrence: None)
  Receive Date: 20080123
  Receipt Date: 20080123
  Transmission Date: 20080703
  Serious: Yes (Death)
  Sender: FDA-Public Use
  Company Number: None

PATIENT
  Age: 83 Year
  Sex: Male
  Weight: 93.6678 kg

DRUGS (12)
  1. PHYTONADIONE [Suspect]
     Indication: CATHETERISATION CARDIAC
     Dosage: 1 MG X1 IV DRIP 1 DDOSE ONLY
     Route: 041
     Dates: start: 20071225, end: 20071225
  2. PHYTONADIONE [Suspect]
     Indication: PREOPERATIVE CARE
     Dosage: 1 MG X1 IV DRIP 1 DDOSE ONLY
     Route: 041
     Dates: start: 20071225, end: 20071225
  3. METOPROLOL TARTRATE [Concomitant]
  4. LIPITOR [Concomitant]
  5. COUMADIN [Concomitant]
  6. FUROSEMIDE [Concomitant]
  7. ZAROXOLYN [Concomitant]
  8. ZESTRIL [Concomitant]
  9. AMIODARONE [Concomitant]
  10. BUMEX [Concomitant]
  11. NATRECOR [Concomitant]
  12. TERAZOSIN HCL [Concomitant]

REACTIONS (9)
  - ASCITES [None]
  - ATRIAL FIBRILLATION [None]
  - BUNDLE BRANCH BLOCK RIGHT [None]
  - CARDIAC ARREST [None]
  - CARDIAC FAILURE CONGESTIVE [None]
  - DYSPNOEA [None]
  - ELECTROCARDIOGRAM ST-T CHANGE [None]
  - PULMONARY ARTERIAL PRESSURE INCREASED [None]
  - RIGHT VENTRICULAR HYPERTROPHY [None]
